FAERS Safety Report 9911749 (Version 3)
Quarter: 2014Q2

REPORT INFORMATION
  Report Type: Spontaneous
  Country: US (occurrence: US)
  Receive Date: 20140219
  Receipt Date: 20140616
  Transmission Date: 20141212
  Serious: Yes (Hospitalization, Other)
  Sender: FDA-Public Use
  Company Number: US-RB-063630-14

PATIENT
  Age: 32 Year
  Sex: Female

DRUGS (2)
  1. SUBOXONE FILM [Suspect]
     Indication: DRUG DEPENDENCE
     Dosage: SUBOXONE FILM;
     Route: 060
     Dates: start: 201305
  2. NICOTINE [Concomitant]
     Indication: PRODUCT USED FOR UNKNOWN INDICATION
     Dosage: THE PATIENT SMOKES 10 CIGARETTES DAILY
     Route: 055

REACTIONS (3)
  - Cardiac failure congestive [Recovering/Resolving]
  - Pulmonary oedema [Recovered/Resolved]
  - Angina pectoris [Recovering/Resolving]
